FAERS Safety Report 20155607 (Version 4)
Quarter: 2022Q1

REPORT INFORMATION
  Report Type: Report from Study
  Country: US (occurrence: None)
  Receive Date: 20211207
  Receipt Date: 20220118
  Transmission Date: 20220423
  Serious: Yes (Death)
  Sender: FDA-Public Use
  Company Number: US-ROCHE-2969993

PATIENT
  Age: 71 Year
  Sex: Female
  Weight: 78.5 kg

DRUGS (18)
  1. VENETOCLAX [Suspect]
     Active Substance: VENETOCLAX
     Indication: Follicular lymphoma
     Dosage: ON 14/FEB/2020 LAST DOSE
     Route: 065
     Dates: start: 20190711
  2. VENETOCLAX [Suspect]
     Active Substance: VENETOCLAX
     Route: 065
     Dates: start: 20190905
  3. OBINUTUZUMAB [Suspect]
     Active Substance: OBINUTUZUMAB
     Indication: Follicular lymphoma
     Dosage: ON 11/JAN/2021 LAST DOSE
     Route: 042
     Dates: start: 20190711
  4. OBINUTUZUMAB [Suspect]
     Active Substance: OBINUTUZUMAB
     Route: 042
     Dates: start: 20210905
  5. BENDAMUSTINE [Suspect]
     Active Substance: BENDAMUSTINE
     Indication: Follicular lymphoma
     Dosage: ON 14/FEB/2020 LAST DOSE
     Route: 065
     Dates: start: 20190711
  6. BENDAMUSTINE [Suspect]
     Active Substance: BENDAMUSTINE
     Route: 065
     Dates: start: 20210905
  7. ACETAMINOPHEN [Concomitant]
     Active Substance: ACETAMINOPHEN
  8. AMLODIPINE [Concomitant]
     Active Substance: AMLODIPINE BESYLATE
  9. ASPIRIN [Concomitant]
     Active Substance: ASPIRIN
  10. BENZONATATE [Concomitant]
     Active Substance: BENZONATATE
  11. CHOLECALCIFEROL [Concomitant]
     Active Substance: CHOLECALCIFEROL
  12. CYCLOBENZAPRINE [Concomitant]
     Active Substance: CYCLOBENZAPRINE
  13. FLUTICASONE [Concomitant]
     Active Substance: FLUTICASONE
  14. GABAPENTIN [Concomitant]
     Active Substance: GABAPENTIN
  15. LISINOPRIL [Concomitant]
     Active Substance: LISINOPRIL
  16. MELOXICAM [Concomitant]
     Active Substance: MELOXICAM
  17. METOPROLOL [Concomitant]
     Active Substance: METOPROLOL
  18. BACTRIM [Concomitant]
     Active Substance: SULFAMETHOXAZOLE\TRIMETHOPRIM

REACTIONS (1)
  - COVID-19 [Fatal]

NARRATIVE: CASE EVENT DATE: 20211112
